FAERS Safety Report 22734778 (Version 2)
Quarter: 2023Q4

REPORT INFORMATION
  Report Type: Report from Study
  Country: FR (occurrence: FR)
  Receive Date: 20230721
  Receipt Date: 20231208
  Transmission Date: 20240110
  Serious: Yes (Hospitalization, Other)
  Sender: FDA-Public Use
  Company Number: FR-002147023-PHHY2017FR036980

PATIENT
  Age: 54 Year
  Sex: Female
  Weight: 65 kg

DRUGS (11)
  1. DALFAMPRIDINE [Suspect]
     Active Substance: DALFAMPRIDINE
     Indication: Multiple sclerosis
     Dosage: 1 DF, QD
     Route: 050
     Dates: start: 20170301
  2. DALFAMPRIDINE [Suspect]
     Active Substance: DALFAMPRIDINE
     Dosage: UNK UNK, QD
     Route: 050
     Dates: start: 201609, end: 20170301
  3. DALFAMPRIDINE [Suspect]
     Active Substance: DALFAMPRIDINE
     Route: 050
  4. AMLODIPINE BESYLATE [Suspect]
     Active Substance: AMLODIPINE BESYLATE
     Indication: Product used for unknown indication
     Dosage: 5 MG, QD
     Route: 050
     Dates: start: 2017
  5. BACLOFEN [Suspect]
     Active Substance: BACLOFEN
     Indication: Product used for unknown indication
     Dosage: 6 DF, QD
     Route: 050
     Dates: start: 201703
  6. LEVOTHYROXINE [Suspect]
     Active Substance: LEVOTHYROXINE
     Indication: Product used for unknown indication
     Dosage: 125 MCG, QD
     Route: 050
     Dates: start: 20161214
  7. GILENYA [Suspect]
     Active Substance: FINGOLIMOD HYDROCHLORIDE
     Indication: Relapsing-remitting multiple sclerosis
     Dosage: UNK
     Route: 050
     Dates: start: 20160901, end: 20170306
  8. GILENYA [Suspect]
     Active Substance: FINGOLIMOD HYDROCHLORIDE
     Dosage: UNK
     Route: 050
     Dates: start: 20210310
  9. ASPIRIN [Suspect]
     Active Substance: ASPIRIN
     Indication: Product used for unknown indication
     Dosage: 75 MG, QD
     Route: 050
     Dates: start: 2017
  10. NADROPARIN CALCIUM [Suspect]
     Active Substance: NADROPARIN CALCIUM
     Indication: Product used for unknown indication
     Dosage: 2850 IU, QD
     Route: 050
     Dates: start: 20170221
  11. ZOPICLONE [Suspect]
     Active Substance: ZOPICLONE
     Indication: Product used for unknown indication
     Dosage: 1 DF, QD
     Route: 050
     Dates: start: 2017

REACTIONS (14)
  - Cerebrovascular accident [Recovered/Resolved with Sequelae]
  - Femoral neck fracture [Not Recovered/Not Resolved]
  - Anosognosia [Unknown]
  - Hemiplegia [Not Recovered/Not Resolved]
  - Femur fracture [Not Recovered/Not Resolved]
  - Dysarthria [Not Recovered/Not Resolved]
  - Muscular weakness [Unknown]
  - Hypoaesthesia [Not Recovered/Not Resolved]
  - Dysphagia [Not Recovered/Not Resolved]
  - Fall [Recovered/Resolved]
  - Cerebral thrombosis [Recovered/Resolved with Sequelae]
  - Paralysis [Not Recovered/Not Resolved]
  - Motor dysfunction [Unknown]
  - Paralysis [Not Recovered/Not Resolved]

NARRATIVE: CASE EVENT DATE: 20161206
